FAERS Safety Report 4764889-9 (Version None)
Quarter: 2005Q3

REPORT INFORMATION
  Report Type: 
  Country: None (occurrence: None)
  Receive Date: 20050906
  Receipt Date: 20050818
  Transmission Date: 20060218
  Serious: Yes (Other)
  Sender: FDA-Public Use
  Company Number: US_0411107536

PATIENT
  Sex: Female

DRUGS (9)
  1. ZYPREXA [Suspect]
     Dosage: 10 MG/1 AT BEDTIME
     Dates: start: 19971201
  2. LORAZEPAM [Concomitant]
  3. SERZONE [Concomitant]
  4. CELEXA [Concomitant]
  5. LEXAPRO [Concomitant]
  6. DIOVAN [Concomitant]
  7. ATENOLOL [Concomitant]
  8. HYDROCHLOROTHIAZIDE [Concomitant]
  9. ZETIA [Concomitant]

REACTIONS (7)
  - BLOOD CHOLESTEROL INCREASED [None]
  - CARDIAC DISORDER [None]
  - CONDITION AGGRAVATED [None]
  - DEPRESSION [None]
  - HYPERTENSION [None]
  - MENTAL DISORDER [None]
  - SKIN CANCER [None]
